FAERS Safety Report 7722229-7 (Version None)
Quarter: 2011Q3

REPORT INFORMATION
  Report Type: 
  Country: None (occurrence: None)
  Receive Date: 20110831
  Receipt Date: 20110826
  Transmission Date: 20111222
  Serious: Yes (Other)
  Sender: FDA-Public Use
  Company Number: JP-PFIZER INC-2010169579

PATIENT
  Age: 57 Year
  Sex: Male
  Weight: 95 kg

DRUGS (12)
  1. GABAPENTIN [Suspect]
     Dosage: 400 MG, DAILY
     Route: 048
     Dates: start: 20101202, end: 20101203
  2. METHYCOBAL [Concomitant]
     Dosage: UNK
     Route: 048
  3. EVAMYL [Concomitant]
     Dosage: UNK
     Route: 048
  4. PROCHLORPERAZINE [Suspect]
     Indication: NAUSEA
     Dosage: 5 MG, 3X/DAY
     Route: 048
     Dates: start: 20101115, end: 20101122
  5. ALFAROL [Concomitant]
     Dosage: UNK
     Route: 048
  6. OXYCONTIN [Suspect]
     Indication: CANCER PAIN
     Dosage: 5 MG, 2X/DAY
     Route: 048
     Dates: start: 20101115, end: 20101116
  7. OXINORM [Concomitant]
     Dosage: UNK
     Route: 048
  8. VOLTAREN [Concomitant]
     Dosage: UNK
     Route: 048
  9. GABAPENTIN [Suspect]
     Indication: CANCER PAIN
     Dosage: 600 MG, DAILY
     Route: 048
     Dates: start: 20101115, end: 20101119
  10. TAMSULOSIN HCL [Concomitant]
     Dosage: UNK
     Route: 048
  11. OXYCONTIN [Suspect]
     Dosage: 10 MG, 2X/DAY
     Route: 048
     Dates: start: 20101117, end: 20101119
  12. PROCHLORPERAZINE [Concomitant]
     Indication: NAUSEA
     Dosage: 5 MG, 3X/DAY

REACTIONS (4)
  - PAIN IN EXTREMITY [None]
  - PYREXIA [None]
  - C-REACTIVE PROTEIN INCREASED [None]
  - HEPATIC FUNCTION ABNORMAL [None]
